FAERS Safety Report 15752915 (Version 3)
Quarter: 2019Q1

REPORT INFORMATION
  Report Type: Report from Study
  Country: US (occurrence: US)
  Receive Date: 20181221
  Receipt Date: 20190118
  Transmission Date: 20190417
  Serious: Yes (Hospitalization)
  Sender: FDA-Public Use
  Company Number: US-B.I. PHARMACEUTICALS,INC./RIDGEFIELD-2018-BI-060514

PATIENT
  Age: 62 Year
  Sex: Male
  Weight: 262 kg

DRUGS (2)
  1. CATAPRES-TTS [Suspect]
     Active Substance: CLONIDINE
     Indication: DRUG THERAPY
     Dosage: SKIN PATCH
     Route: 062
     Dates: start: 20180802, end: 20181124
  2. METHADONE [Suspect]
     Active Substance: METHADONE HYDROCHLORIDE
     Indication: PAIN MANAGEMENT
     Route: 048
     Dates: start: 20180119

REACTIONS (1)
  - Hypertensive emergency [Recovered/Resolved]

NARRATIVE: CASE EVENT DATE: 20181122
